FAERS Safety Report 25919771 (Version 1)
Quarter: 2025Q4

REPORT INFORMATION
  Report Type: Spontaneous
  Country: US (occurrence: US)
  Receive Date: 20251014
  Receipt Date: 20251014
  Transmission Date: 20260117
  Serious: No
  Sender: BOTANIX PHARMACEUTICALS
  Company Number: US-BOTANIX PHARMACEUTICALS-2025BOT00248

PATIENT
  Sex: Male

DRUGS (1)
  1. SOFDRA [Suspect]
     Active Substance: SOFPIRONIUM BROMIDE
     Indication: Hyperhidrosis
     Dosage: 72 MG, 1X/DAY AT BEDTIME
     Route: 061

REACTIONS (3)
  - Dry mouth [Unknown]
  - Application site irritation [Unknown]
  - Vision blurred [Unknown]
